FAERS Safety Report 7668956-1 (Version None)
Quarter: 2011Q3

REPORT INFORMATION
  Report Type: 
  Country: None (occurrence: None)
  Receive Date: 20110808
  Receipt Date: 20110801
  Transmission Date: 20111222
  Serious: Yes (Other)
  Sender: FDA-Public Use
  Company Number: US-GLAXOSMITHKLINE-A0939941A

PATIENT
  Age: 1 Month
  Sex: Male

DRUGS (5)
  1. LAMICTAL [Suspect]
     Indication: EPILEPSY
     Route: 064
     Dates: end: 20100406
  2. LAMICTAL [Suspect]
     Route: 064
     Dates: start: 20100406, end: 20100615
  3. LAMICTAL [Suspect]
     Route: 064
     Dates: start: 20100615, end: 20100820
  4. LAMICTAL [Suspect]
     Route: 064
     Dates: start: 20100820, end: 20101015
  5. VALTREX [Suspect]
     Indication: HERPES VIRUS INFECTION
     Route: 064
     Dates: start: 20100925, end: 20101015

REACTIONS (2)
  - MATERNAL EXPOSURE DURING PREGNANCY [None]
  - INGUINAL HERNIA [None]
